FAERS Safety Report 23040516 (Version 1)
Quarter: 2023Q4

REPORT INFORMATION
  Report Type: Spontaneous
  Country: US (occurrence: US)
  Receive Date: 20231006
  Receipt Date: 20231006
  Transmission Date: 20240110
  Serious: No
  Sender: FDA-Public Use
  Company Number: US-TEVA-2023-US-2928981

PATIENT
  Age: 67 Year
  Sex: Female

DRUGS (1)
  1. AJOVY [Suspect]
     Active Substance: FREMANEZUMAB-VFRM
     Indication: Migraine
     Dosage: FORM STRENGTH: 225/1.5 MG/ML
     Route: 065
     Dates: start: 202308

REACTIONS (7)
  - Migraine [Unknown]
  - Injection site pain [Unknown]
  - Accidental exposure to product [Unknown]
  - Device leakage [Unknown]
  - Needle issue [Unknown]
  - Device audio issue [Unknown]
  - Device failure [Unknown]

NARRATIVE: CASE EVENT DATE: 20230801
